FAERS Safety Report 7682665-4 (Version None)
Quarter: 2011Q3

REPORT INFORMATION
  Report Type: 
  Country: None (occurrence: None)
  Receive Date: 20110815
  Receipt Date: 20110801
  Transmission Date: 20111222
  Serious: Yes (Hospitalization)
  Sender: FDA-Public Use
  Company Number: US-JNJFOC-20060203176

PATIENT
  Sex: Female
  Weight: 38.51 kg

DRUGS (2)
  1. INFLIXIMAB [Suspect]
     Route: 042
     Dates: start: 20041222
  2. INFLIXIMAB [Suspect]
     Indication: COLITIS ULCERATIVE
     Route: 042
     Dates: start: 20031124, end: 20040928

REACTIONS (5)
  - POUCHITIS [None]
  - SKIN DISORDER [None]
  - COLITIS ULCERATIVE [None]
  - ABDOMINAL WALL ABSCESS [None]
  - DEVICE RELATED SEPSIS [None]
